FAERS Safety Report 8097601-9 (Version None)
Quarter: 2012Q1

REPORT INFORMATION
  Report Type: 
  Country: None (occurrence: None)
  Receive Date: 20120128
  Receipt Date: 20110705
  Transmission Date: 20120608
  Serious: No
  Sender: FDA-Public Use
  Company Number: US-ABBOTT-11P-163-0836221-00

PATIENT
  Sex: Male

DRUGS (2)
  1. METHOTREXATE [Suspect]
     Indication: PRODUCT USED FOR UNKNOWN INDICATION
     Dates: end: 20110401
  2. HUMIRA [Suspect]
     Indication: SPONDYLOARTHROPATHY
     Dates: start: 20100804, end: 20110401

REACTIONS (2)
  - FATIGUE [None]
  - ABDOMINAL PAIN [None]
